FAERS Safety Report 9189926 (Version 1)
Quarter: 2013Q1

REPORT INFORMATION
  Report Type: Spontaneous
  Country: FR (occurrence: FR)
  Receive Date: 20130326
  Receipt Date: 20130326
  Transmission Date: 20140127
  Serious: Yes (Death, Other)
  Sender: FDA-Public Use
  Company Number: FR-PFIZER INC-2013092444

PATIENT
  Age: 49 Year
  Sex: Male

DRUGS (4)
  1. REVATIO [Suspect]
     Indication: PULMONARY HYPERTENSION
     Dosage: 20 MG, 3X/DAY
     Route: 048
     Dates: start: 20080530
  2. CLARITHROMYCIN [Interacting]
     Indication: HELICOBACTER INFECTION
     Dosage: UNK
     Route: 048
  3. AMOXICILLIN [Suspect]
     Indication: HELICOBACTER INFECTION
     Dosage: UNK
     Route: 048
  4. TRACLEER [Interacting]
     Dosage: 62.5 MG, 2X/DAY
     Route: 048
     Dates: start: 20080526

REACTIONS (2)
  - Drug interaction [Fatal]
  - Hepatic failure [Fatal]
